FAERS Safety Report 13590995 (Version 3)
Quarter: 2017Q3

REPORT INFORMATION
  Report Type: Report from Study
  Country: US (occurrence: US)
  Receive Date: 20170529
  Receipt Date: 20170920
  Transmission Date: 20171127
  Serious: Yes (Other)
  Sender: FDA-Public Use
  Company Number: US-MALLINCKRODT-T201701612

PATIENT
  Sex: Female

DRUGS (3)
  1. REPOSITORY CORTICOTROPIN INJECTION [Suspect]
     Active Substance: CORTICOTROPIN
     Dosage: 80 UNITS/ML, TWICE PER WEEK (TUESDAY/FRIDAY)
     Route: 058
     Dates: start: 20160909
  2. REPOSITORY CORTICOTROPIN INJECTION [Suspect]
     Active Substance: CORTICOTROPIN
     Indication: NEPHROTIC SYNDROME
     Dosage: 80 UNITS/ML, TWICE PER WEEK (TUESDAY/FRIDAY)
     Route: 058
     Dates: start: 20160909
  3. REPOSITORY CORTICOTROPIN INJECTION [Suspect]
     Active Substance: CORTICOTROPIN
     Indication: PROTEINURIA
     Dosage: 80UNITS/ML TWICE PER WEEK
     Route: 065
     Dates: start: 20160909

REACTIONS (9)
  - Asthenia [Not Recovered/Not Resolved]
  - Oropharyngeal pain [Not Recovered/Not Resolved]
  - Back pain [Not Recovered/Not Resolved]
  - Malaise [Not Recovered/Not Resolved]
  - Somnolence [Not Recovered/Not Resolved]
  - Bronchitis [Recovering/Resolving]
  - Blood potassium decreased [Recovering/Resolving]
  - Dizziness [Not Recovered/Not Resolved]
  - Fluid retention [Recovering/Resolving]
